FAERS Safety Report 25363517 (Version 1)
Quarter: 2025Q2

REPORT INFORMATION
  Report Type: Report from Study
  Country: GB (occurrence: GB)
  Receive Date: 20250527
  Receipt Date: 20250527
  Transmission Date: 20250717
  Serious: Yes (Other)
  Sender: ABBVIE
  Company Number: GB-ABBVIE-6296944

PATIENT
  Sex: Male

DRUGS (2)
  1. HUMIRA [Suspect]
     Active Substance: ADALIMUMAB
     Indication: Ankylosing spondylitis
     Dosage: SOLUTION FOR INJECTION IN PRE-FILLED SYRINGE, 2 PRE-FILLED DISPOSABLE INJECTION
     Route: 058
  2. HUMIRA [Suspect]
     Active Substance: ADALIMUMAB
     Dosage: SOLUTION FOR INJECTION IN PRE-FILLED SYRINGE, 2 PRE-FILLED DISPOSABLE INJECTION
     Route: 058

REACTIONS (3)
  - Spinal cord compression [Unknown]
  - Spinal disorder [Unknown]
  - Fall [Unknown]
